FAERS Safety Report 10144670 (Version 1)
Quarter: 2014Q2

REPORT INFORMATION
  Report Type: Spontaneous
  Country: US (occurrence: US)
  Receive Date: 20140430
  Receipt Date: 20140430
  Transmission Date: 20141212
  Serious: Yes (Other)
  Sender: FDA-Public Use
  Company Number: US-SA-2013SA115074

PATIENT
  Age: 79 Year
  Sex: Male

DRUGS (3)
  1. LOVENOX [Suspect]
     Indication: PULMONARY EMBOLISM
     Route: 065
     Dates: start: 201305
  2. LOVENOX [Suspect]
     Indication: PULMONARY EMBOLISM
     Route: 065
     Dates: start: 20130614
  3. LOVENOX [Suspect]
     Indication: PULMONARY EMBOLISM
     Route: 065

REACTIONS (3)
  - Pulmonary embolism [Not Recovered/Not Resolved]
  - Therapeutic response decreased [Unknown]
  - Weight decreased [Not Recovered/Not Resolved]
